FAERS Safety Report 8866165 (Version 1)
Quarter: 2012Q4

REPORT INFORMATION
  Report Type: 
  Country: PT (occurrence: PT)
  Receive Date: 20121025
  Receipt Date: 20121025
  Transmission Date: 20130627
  Serious: Yes (Other)
  Sender: FDA-Public Use
  Company Number: PT-ROCHE-1091693

PATIENT
  Age: 70 Year
  Sex: Female

DRUGS (19)
  1. MABTHERA [Suspect]
     Indication: HAEMOLYTIC ANAEMIA
     Dosage: route:intravenous perfusion
     Route: 042
     Dates: start: 20110919, end: 20111010
  2. MABTHERA [Suspect]
     Route: 042
     Dates: start: 20110926
  3. MABTHERA [Suspect]
     Route: 042
     Dates: start: 20111003
  4. MABTHERA [Suspect]
     Route: 042
     Dates: start: 20111010
  5. MABTHERA [Suspect]
     Route: 042
     Dates: start: 20120605
  6. MABTHERA [Suspect]
     Route: 042
     Dates: start: 20120612
  7. MABTHERA [Suspect]
     Route: 042
     Dates: start: 20120619
  8. MABTHERA [Suspect]
     Route: 042
     Dates: start: 20120703
  9. MABTHERA [Suspect]
     Route: 042
     Dates: start: 20120607
  10. ESOMEPRAZOLE [Concomitant]
     Indication: PROPHYLAXIS AGAINST GASTROINTESTINAL ULCER
     Route: 048
  11. LEPICORTINOLO [Concomitant]
     Indication: SYSTEMIC LUPUS ERYTHEMATOSUS
     Route: 048
  12. LEPICORTINOLO [Concomitant]
     Indication: HAEMOLYTIC ANAEMIA
  13. FOLICIL [Concomitant]
     Indication: ANAEMIA
  14. CALCIUM [Concomitant]
     Indication: OSTEOPOROSIS
  15. FOSAVANCE [Concomitant]
     Indication: OSTEOPOROSIS
  16. CONCOR [Concomitant]
     Indication: HYPERTENSION
  17. PLAQUENIL [Concomitant]
     Indication: SYSTEMIC LUPUS ERYTHEMATOSUS
     Route: 065
  18. FUROSEMIDE [Concomitant]
     Indication: CARDIAC FAILURE CONGESTIVE
     Route: 048
  19. FUROSEMIDE [Concomitant]
     Indication: HYPERTENSION

REACTIONS (2)
  - Erythema annulare [Recovered/Resolved]
  - Erysipelas [Recovered/Resolved]
